FAERS Safety Report 9921714 (Version 1)
Quarter: 2014Q1

REPORT INFORMATION
  Report Type: Spontaneous
  Country: US (occurrence: None)
  Receive Date: 20140221
  Receipt Date: 20140221
  Transmission Date: 20141002
  Serious: Yes (Other)
  Sender: FDA-Public Use
  Company Number: None

PATIENT
  Sex: 0

DRUGS (2)
  1. KENALOG [Suspect]
  2. BENZYL ALCOHOL [Suspect]

REACTIONS (5)
  - Rash [None]
  - Reaction to preservatives [None]
  - Rash erythematous [None]
  - Rash [None]
  - Rash [None]
